FAERS Safety Report 21666022 (Version 5)
Quarter: 2023Q1

REPORT INFORMATION
  Report Type: Report from Study
  Country: SE (occurrence: SE)
  Receive Date: 20221201
  Receipt Date: 20230217
  Transmission Date: 20230417
  Serious: Yes (Death, Hospitalization, Other)
  Sender: FDA-Public Use
  Company Number: SE-BIOVITRUM-2022SE13710

PATIENT

DRUGS (1)
  1. PEGCETACOPLAN [Suspect]
     Active Substance: PEGCETACOPLAN
     Dosage: STARTED PEGCETACOPLAN STANDARD DOSE (TWICE A WEEK) WITH FIRST DOSE OCTOBER 31.
     Dates: start: 20221031, end: 20221114

REACTIONS (5)
  - Malignant hypertension [Fatal]
  - Seizure [Unknown]
  - Posterior reversible encephalopathy syndrome [Unknown]
  - Haemophagocytic lymphohistiocytosis [Unknown]
  - Cerebral infarction [Unknown]

NARRATIVE: CASE EVENT DATE: 20221115
